FAERS Safety Report 4959363-0 (Version None)
Quarter: 2006Q1

REPORT INFORMATION
  Report Type: 
  Country: None (occurrence: None)
  Receive Date: 20060201
  Receipt Date: 20051124
  Transmission Date: 20060701
  Serious: No
  Sender: FDA-Public Use
  Company Number: 2005PV004790

PATIENT
  Age: 59 Year
  Sex: Female
  Weight: 109.7705 kg

DRUGS (6)
  1. BYETTA [Suspect]
     Indication: DIABETES MELLITUS NON-INSULIN-DEPENDENT
     Dosage: 5 MCG, BID; SC; SEE IMAGE
     Route: 058
     Dates: start: 20051001, end: 20051001
  2. BYETTA [Suspect]
     Indication: DIABETES MELLITUS NON-INSULIN-DEPENDENT
     Dosage: 5 MCG, BID; SC; SEE IMAGE
     Route: 058
     Dates: start: 20051123
  3. OMEGA 3 [Suspect]
     Dates: start: 20051120
  4. METFORMIN [Concomitant]
  5. GLYBURIDE [Concomitant]
  6. LISINOPRIL [Concomitant]

REACTIONS (7)
  - ADJUSTMENT DISORDER [None]
  - DECREASED APPETITE [None]
  - DIARRHOEA [None]
  - EARLY SATIETY [None]
  - FATIGUE [None]
  - FEELING JITTERY [None]
  - TENSION [None]
